FAERS Safety Report 4948271-7 (Version None)
Quarter: 2006Q1

REPORT INFORMATION
  Report Type: 
  Country: None (occurrence: None)
  Receive Date: 20060313
  Receipt Date: 20060228
  Transmission Date: 20060701
  Serious: Yes (Death, Life-Threatening, Hospitalization)
  Sender: FDA-Public Use
  Company Number: SUS1-2005-00934

PATIENT

DRUGS (4)
  1. MESALAMINE [Suspect]
     Indication: CROHN'S DISEASE
     Dosage: TRANSPLACENTAL
     Route: 064
  2. INFLIXIMAB (INFLIXIMAB) [Suspect]
     Indication: CROHN'S DISEASE
     Dosage: TRANSPLACENTAL
     Route: 064
  3. METRONIDAZOLE [Suspect]
     Dosage: TRANSPLACENTAL
     Route: 064
  4. AZATHIOPRINE [Suspect]
     Dosage: TRANSPLACENTAL
     Route: 064

REACTIONS (5)
  - CEREBRAL HAEMORRHAGE NEONATAL [None]
  - DEATH NEONATAL [None]
  - DRUG EXPOSURE DURING PREGNANCY [None]
  - PREMATURE LABOUR [None]
  - PULMONARY HAEMORRHAGE [None]
